FAERS Safety Report 18383325 (Version 1)
Quarter: 2020Q4

REPORT INFORMATION
  Report Type: Spontaneous
  Country: US (occurrence: US)
  Receive Date: 20201014
  Receipt Date: 20201014
  Transmission Date: 20210114
  Serious: No
  Sender: FDA-Public Use
  Company Number: US-TEVA-2020-US-1837201

PATIENT
  Age: 49 Year
  Sex: Male

DRUGS (1)
  1. VENLAFAXINE GENERIC TEVA [Suspect]
     Active Substance: VENLAFAXINE HYDROCHLORIDE
     Indication: PANIC ATTACK
     Route: 065

REACTIONS (1)
  - Therapeutic product effect incomplete [Unknown]
